FAERS Safety Report 8959832 (Version 1)
Quarter: 2012Q4

REPORT INFORMATION
  Report Type: 
  Country: CN (occurrence: CN)
  Receive Date: 20121211
  Receipt Date: 20121211
  Transmission Date: 20130627
  Serious: Yes (Other)
  Sender: FDA-Public Use
  Company Number: CN-PFIZER INC-2012313091

PATIENT
  Age: 6 Month
  Sex: Male
  Weight: 9.4 kg

DRUGS (2)
  1. IBUPROFEN [Suspect]
     Indication: FEVER
     Dosage: 240 mg a day
     Route: 048
     Dates: start: 20121124, end: 20121124
  2. CHINESE MEDICATION [Suspect]
     Indication: COLD
     Dosage: UNK
     Dates: start: 20121124

REACTIONS (4)
  - Incorrect dose administered [Unknown]
  - Laboratory test abnormal [Unknown]
  - Transaminases increased [Unknown]
  - Hyperhidrosis [Recovered/Resolved]
